FAERS Safety Report 5557057-4 (Version None)
Quarter: 2007Q4

REPORT INFORMATION
  Report Type: 
  Country: None (occurrence: None)
  Receive Date: 20071211
  Receipt Date: 20071211
  Transmission Date: 20080405
  Serious: Yes (Life-Threatening)
  Sender: FDA-Public Use
  Company Number: None

PATIENT
  Age: 79 Year
  Sex: Male
  Weight: 99 kg

DRUGS (7)
  1. RISPERDAL [Suspect]
     Indication: AGITATION
     Dosage: 1MG QHS PO
     Route: 048
     Dates: start: 20071204, end: 20071206
  2. RISPERDAL [Suspect]
     Indication: DELIRIUM
     Dosage: 1MG QHS PO
     Route: 048
     Dates: start: 20071204, end: 20071206
  3. HALOPERIDOL [Suspect]
     Indication: AGITATION
     Dosage: 5MG Q6H PRN IV BOLUS
     Route: 040
     Dates: start: 20071203, end: 20071206
  4. HALOPERIDOL [Suspect]
     Indication: DELIRIUM
     Dosage: 5MG Q6H PRN IV BOLUS
     Route: 040
     Dates: start: 20071203, end: 20071206
  5. DILTIAZEM [Concomitant]
  6. DIGOXIN [Concomitant]
  7. METOPROLOL SUCCINATE [Concomitant]

REACTIONS (6)
  - BLOOD POTASSIUM DECREASED [None]
  - ELECTROCARDIOGRAM QRS COMPLEX PROLONGED [None]
  - HEART RATE DECREASED [None]
  - TORSADE DE POINTES [None]
  - VENTRICULAR EXTRASYSTOLES [None]
  - VENTRICULAR TACHYCARDIA [None]
